FAERS Safety Report 24099003 (Version 1)
Quarter: 2024Q3

REPORT INFORMATION
  Report Type: Spontaneous
  Country: US (occurrence: US)
  Receive Date: 20240716
  Receipt Date: 20240716
  Transmission Date: 20241016
  Serious: No
  Sender: NOVO NORDISK
  Company Number: US-NOVOPROD-1165830

PATIENT
  Age: 71 Year
  Sex: Male
  Weight: 99.773 kg

DRUGS (2)
  1. OZEMPIC [Suspect]
     Active Substance: SEMAGLUTIDE
     Indication: Diabetes mellitus management
     Dosage: UNK
     Route: 058
     Dates: start: 20220101, end: 20230801
  2. OZEMPIC [Suspect]
     Active Substance: SEMAGLUTIDE
     Indication: Type 2 diabetes mellitus
     Dosage: 1 MG, QW
     Route: 058
     Dates: start: 202204, end: 202309

REACTIONS (2)
  - Weight decreased [Unknown]
  - Off label use [Unknown]

NARRATIVE: CASE EVENT DATE: 20220101
